FAERS Safety Report 9648516 (Version 1)
Quarter: 2013Q4

REPORT INFORMATION
  Report Type: Other
  Country: US (occurrence: US)
  Receive Date: 20131028
  Receipt Date: 20131028
  Transmission Date: 20140711
  Serious: Yes (Hospitalization, Other)
  Sender: FDA-Public Use
  Company Number: US-FRI-1000050398

PATIENT
  Age: 58 Year
  Sex: Female

DRUGS (2)
  1. DILTIAZEM [Suspect]
  2. INSULIN [Suspect]
     Indication: TOXICITY TO VARIOUS AGENTS

REACTIONS (7)
  - Overdose [Recovered/Resolved]
  - Toxicity to various agents [Recovered/Resolved]
  - Atrioventricular block first degree [Recovered/Resolved]
  - Fluid overload [Recovered/Resolved]
  - Pulmonary oedema [Recovered/Resolved]
  - Generalised oedema [Recovered/Resolved]
  - Respiratory failure [Recovered/Resolved]
